FAERS Safety Report 14477258 (Version 1)
Quarter: 2018Q1

REPORT INFORMATION
  Report Type: Report from Study
  Country: US (occurrence: US)
  Receive Date: 20180201
  Receipt Date: 20180201
  Transmission Date: 20180509
  Serious: No
  Sender: FDA-Public Use
  Company Number: US-EXELIXIS-CABO-17011065

PATIENT
  Sex: Male

DRUGS (9)
  1. ANTIHISTAMINE DECONGESTANT [Concomitant]
  2. ASPIRIN 81 [Concomitant]
     Active Substance: ASPIRIN
  3. DEXAMETHASONE. [Concomitant]
     Active Substance: DEXAMETHASONE
  4. CABOMETYX [Suspect]
     Active Substance: CABOZANTINIB S-MALATE
     Indication: RENAL CANCER
     Dosage: 60 MG, QD
     Route: 048
     Dates: start: 20160810, end: 201609
  5. TYLENOL [Concomitant]
     Active Substance: ACETAMINOPHEN
  6. CABOMETYX [Suspect]
     Active Substance: CABOZANTINIB S-MALATE
     Indication: BONE CANCER
     Dosage: 40 MG, QD
     Route: 048
     Dates: start: 201609
  7. BROMALINE [Concomitant]
  8. OMEPRAZOLE. [Concomitant]
     Active Substance: OMEPRAZOLE
  9. LEVOTHYROXINE SODIUM. [Concomitant]
     Active Substance: LEVOTHYROXINE SODIUM

REACTIONS (8)
  - Hyperkeratosis [Unknown]
  - Blister [Not Recovered/Not Resolved]
  - Dysphonia [Unknown]
  - Upper-airway cough syndrome [Unknown]
  - Ear congestion [Unknown]
  - Dyspnoea [Unknown]
  - Dry skin [Recovering/Resolving]
  - Cough [Unknown]
